FAERS Safety Report 15705386 (Version 1)
Quarter: 2018Q4

REPORT INFORMATION
  Report Type: Spontaneous
  Country: US (occurrence: US)
  Receive Date: 20181210
  Receipt Date: 20181210
  Transmission Date: 20190205
  Serious: No
  Sender: FDA-Public Use
  Company Number: US-BAYER-2018-221430

PATIENT
  Age: 42 Year
  Sex: Female

DRUGS (2)
  1. BETACONNECT [Suspect]
     Active Substance: DEVICE
     Dosage: UNK MG
  2. BETASERON [Suspect]
     Active Substance: INTERFERON BETA-1B
     Dosage: 0.3 MG, QOD

REACTIONS (2)
  - Product dose omission [None]
  - Device use issue [None]

NARRATIVE: CASE EVENT DATE: 20181117
